FAERS Safety Report 9856943 (Version 2)
Quarter: 2014Q1

REPORT INFORMATION
  Report Type: Spontaneous
  Country: US (occurrence: US)
  Receive Date: 20140130
  Receipt Date: 20140203
  Transmission Date: 20141002
  Serious: Yes (Death)
  Sender: FDA-Public Use
  Company Number: US-ABBVIE-14P-163-1195119-00

PATIENT
  Sex: Female
  Weight: 68.1 kg

DRUGS (1)
  1. SYNTHROID [Suspect]
     Indication: HYPOTHYROIDISM
     Route: 048

REACTIONS (4)
  - Pancreatic carcinoma [Fatal]
  - Unevaluable event [Unknown]
  - Feeling abnormal [Recovered/Resolved]
  - Hypoaesthesia oral [Recovered/Resolved]
